FAERS Safety Report 21661576 (Version 7)
Quarter: 2024Q4

REPORT INFORMATION
  Report Type: Report from Study
  Country: CA (occurrence: CA)
  Receive Date: 20221130
  Receipt Date: 20241224
  Transmission Date: 20250115
  Serious: Yes (Other)
  Sender: ROCHE
  Company Number: CA-ROCHE-3218421

PATIENT
  Age: 31 Year
  Sex: Female

DRUGS (1)
  1. OCREVUS [Suspect]
     Active Substance: OCRELIZUMAB
     Indication: Relapsing-remitting multiple sclerosis
     Dosage: 300 MG AT DAY 0 AND 14, THEN 600 MG EVERY 6 MONTH
     Route: 042
     Dates: start: 20220318

REACTIONS (5)
  - Hordeolum [Not Recovered/Not Resolved]
  - COVID-19 [Not Recovered/Not Resolved]
  - Ovarian cyst [Unknown]
  - Pneumonia [Recovered/Resolved]
  - Lacrimal disorder [Unknown]

NARRATIVE: CASE EVENT DATE: 20221121
